FAERS Safety Report 10542765 (Version 2)
Quarter: 2014Q4

REPORT INFORMATION
  Report Type: Spontaneous
  Country: ES (occurrence: ES)
  Receive Date: 20141027
  Receipt Date: 20141031
  Transmission Date: 20150529
  Serious: Yes (Hospitalization, Other)
  Sender: FDA-Public Use
  Company Number: ES-AMGEN-ESPSP2014081744

PATIENT
  Age: 83 Year
  Sex: Female

DRUGS (5)
  1. PROLIA [Suspect]
     Active Substance: DENOSUMAB
     Indication: PRODUCT USED FOR UNKNOWN INDICATION
     Route: 065
  2. AMERIDE /00206601/ [Suspect]
     Active Substance: AMILORIDE HYDROCHLORIDE\HYDROCHLOROTHIAZIDE
     Indication: PRODUCT USED FOR UNKNOWN INDICATION
     Dosage: UNK, 5MG/50MG
     Route: 065
     Dates: end: 20141021
  3. FLUOXETINE [Concomitant]
     Active Substance: FLUOXETINE\FLUOXETINE HYDROCHLORIDE
     Dosage: 20 MG, UNK
     Dates: start: 20141014, end: 20141021
  4. CALCIUM [Concomitant]
     Active Substance: CALCIUM
  5. LOSARTAN CINFA [Concomitant]
     Dosage: 50 MG, UNK

REACTIONS (29)
  - Weight decreased [Unknown]
  - Decreased appetite [Unknown]
  - Oedema peripheral [Unknown]
  - Eosinophil count decreased [None]
  - Balance disorder [Unknown]
  - Activities of daily living impaired [Unknown]
  - Disorientation [None]
  - Mean cell haemoglobin concentration increased [None]
  - Blood glucose increased [None]
  - Depression [Unknown]
  - Hyponatraemia [Recovered/Resolved]
  - General symptom [Unknown]
  - Neutrophil count increased [None]
  - Lymphocyte percentage decreased [None]
  - Blood lactic acid increased [None]
  - Oxygen saturation decreased [None]
  - Drug interaction [Unknown]
  - Anxiety [Not Recovered/Not Resolved]
  - Dizziness [Unknown]
  - Haemoglobin decreased [None]
  - Burning sensation [Unknown]
  - Disorientation [Unknown]
  - Emotional disorder [Unknown]
  - Feeling hot [Unknown]
  - Asthenia [Unknown]
  - Red blood cell count decreased [None]
  - Haematocrit decreased [None]
  - Monocyte count increased [None]
  - Acidosis [None]

NARRATIVE: CASE EVENT DATE: 201408
